FAERS Safety Report 4642332-8 (Version None)
Quarter: 2005Q2

REPORT INFORMATION
  Report Type: 
  Country: None (occurrence: None)
  Receive Date: 20050421
  Receipt Date: 20050421
  Transmission Date: 20051028
  Serious: No
  Sender: FDA-Public Use
  Company Number: None

PATIENT
  Sex: Female
  Weight: 79.8331 kg

DRUGS (1)
  1. ZETIA [Suspect]
     Indication: BLOOD CHOLESTEROL INCREASED
     Dosage: 1 TAB DAILY   10 MG   ORAL
     Route: 048
     Dates: start: 20041015, end: 20050318

REACTIONS (9)
  - DEAFNESS TRANSITORY [None]
  - DEAFNESS UNILATERAL [None]
  - DYSPHONIA [None]
  - NASAL SINUS DRAINAGE [None]
  - OTITIS MEDIA [None]
  - RHINITIS [None]
  - SENSORY DISTURBANCE [None]
  - SINUSITIS [None]
  - TINNITUS [None]
